FAERS Safety Report 16069063 (Version 1)
Quarter: 2019Q1

REPORT INFORMATION
  Report Type: Spontaneous
  Country: DE (occurrence: DE)
  Receive Date: 20190313
  Receipt Date: 20190313
  Transmission Date: 20190418
  Serious: Yes (Other)
  Sender: FDA-Public Use
  Company Number: DE-WHANIN PHARM. CO., LTD.-2019M1023347

PATIENT
  Age: 36 Year
  Sex: Male
  Weight: 106 kg

DRUGS (1)
  1. LEPONEX [Suspect]
     Active Substance: CLOZAPINE
     Indication: SCHIZOAFFECTIVE DISORDER
     Dosage: 300 MILLIGRAM, QD
     Route: 048
     Dates: start: 1992, end: 200212

REACTIONS (2)
  - Myocardial infarction [Recovered/Resolved with Sequelae]
  - Coronary artery restenosis [Recovered/Resolved with Sequelae]

NARRATIVE: CASE EVENT DATE: 200208
